FAERS Safety Report 5487059-8 (Version None)
Quarter: 2007Q3

REPORT INFORMATION
  Report Type: 
  Country: None (occurrence: None)
  Receive Date: 20070925
  Receipt Date: 20070622
  Transmission Date: 20080115
  Serious: Yes (Other)
  Sender: FDA-Public Use
  Company Number: 2007US001552

PATIENT
  Age: 57 Year
  Sex: Female

DRUGS (5)
  1. VESICARE [Suspect]
     Indication: URINARY INCONTINENCE
     Dosage: 5MG, UID/QD, ORAL 10 MG, ORAL
     Route: 048
     Dates: end: 20070801
  2. VESICARE [Suspect]
     Indication: URINARY INCONTINENCE
     Dosage: 5MG, UID/QD, ORAL 10 MG, ORAL
     Route: 048
     Dates: start: 20070601
  3. PREVACID [Concomitant]
  4. ACTONEL [Concomitant]
  5. CHLORZOXAZONE [Concomitant]

REACTIONS (2)
  - DRUG INEFFECTIVE [None]
  - URINARY INCONTINENCE [None]
